FAERS Safety Report 6272625-2 (Version None)
Quarter: 2009Q3

REPORT INFORMATION
  Report Type: 
  Country: None (occurrence: None)
  Receive Date: 20090717
  Receipt Date: 20090715
  Transmission Date: 20100115
  Serious: Yes (Death, Hospitalization, Other)
  Sender: FDA-Public Use
  Company Number: US-ASTRAZENECA-2006UW20965

PATIENT
  Age: 16930 Day
  Sex: Male
  Weight: 63.5 kg

DRUGS (24)
  1. SEROQUEL [Suspect]
     Indication: NERVOUSNESS
     Dosage: 75 MG-400 MG
     Route: 048
     Dates: start: 20030218
  2. SEROQUEL [Suspect]
     Indication: DEPRESSION
     Dosage: 75 MG-400 MG
     Route: 048
     Dates: start: 20030218
  3. SEROQUEL [Suspect]
     Indication: ANXIETY
     Dosage: 75 MG-400 MG
     Route: 048
     Dates: start: 20030218
  4. SEROQUEL [Suspect]
     Dosage: TWO TIMES A DAY, UNKNOWN DOSE
     Route: 048
     Dates: start: 20030228
  5. SEROQUEL [Suspect]
     Dosage: TWO TIMES A DAY, UNKNOWN DOSE
     Route: 048
     Dates: start: 20030228
  6. SEROQUEL [Suspect]
     Dosage: TWO TIMES A DAY, UNKNOWN DOSE
     Route: 048
     Dates: start: 20030228
  7. PAXIL [Concomitant]
  8. REMERON [Concomitant]
  9. SONATA [Concomitant]
  10. STARLIX [Concomitant]
  11. INSULIN [Concomitant]
  12. TRAMADOL HCL [Concomitant]
  13. HYDROCHLOROTHIAZIDE [Concomitant]
  14. LORAZEPAM [Concomitant]
  15. FUROSEMIDE [Concomitant]
  16. PREDNISOLONE [Concomitant]
  17. CHLORDIAZEPOXIDE [Concomitant]
  18. SERTRALINE [Concomitant]
  19. CLONIDINE [Concomitant]
  20. TRIAMCINOLONE [Concomitant]
  21. DICYCLOMINE [Concomitant]
  22. AMITRIPTYLINE [Concomitant]
  23. GLYBURIDE [Concomitant]
  24. HYDROXYZINE [Concomitant]

REACTIONS (8)
  - DEATH [None]
  - DIABETES MELLITUS [None]
  - DIABETES MELLITUS INADEQUATE CONTROL [None]
  - DIABETIC COMA [None]
  - KETOACIDOSIS [None]
  - PANCREATITIS [None]
  - PANCREATITIS ACUTE [None]
  - PANCREATITIS RELAPSING [None]
